FAERS Safety Report 12661520 (Version 1)
Quarter: 2016Q3

REPORT INFORMATION
  Report Type: Spontaneous
  Country: US (occurrence: US)
  Receive Date: 20160817
  Receipt Date: 20160817
  Transmission Date: 20161109
  Serious: No
  Sender: FDA-Public Use
  Company Number: US-PFIZER INC-2016388568

PATIENT
  Age: 62 Year
  Sex: Female
  Weight: 85.45 kg

DRUGS (7)
  1. XELJANZ [Suspect]
     Active Substance: TOFACITINIB CITRATE
     Indication: RHEUMATOID ARTHRITIS
     Dosage: 5 MG, 2X/DAY
     Route: 048
     Dates: start: 20160321
  2. ZOLOFT [Concomitant]
     Active Substance: SERTRALINE HYDROCHLORIDE
     Dosage: 25 MG, DAILY
     Route: 048
  3. XELJANZ XR [Concomitant]
     Active Substance: TOFACITINIB CITRATE
     Indication: RHEUMATOID ARTHRITIS
     Dosage: 11 MG, DAILY (11MG PO QD)
     Route: 048
  4. ZOLOFT [Concomitant]
     Active Substance: SERTRALINE HYDROCHLORIDE
     Dosage: 50 MG, DAILY
     Route: 048
     Dates: start: 20160512
  5. ALBUTEROL SULFATE. [Concomitant]
     Active Substance: ALBUTEROL SULFATE
     Dosage: 0.083 %, UNK ((2.5MG/3ML) 0.083% NEBULIZED SOLN, INHALATION)
  6. ANORO ELLIPTA [Concomitant]
     Active Substance: UMECLIDINIUM BROMIDE\VILANTEROL TRIFENATATE
     Dosage: UNK (62.5-25MCG/INH AERO POW BR ACT, INHALATION)
  7. IBUPROFEN. [Concomitant]
     Active Substance: IBUPROFEN
     Dosage: 800 MG, AS NEEDED (1 (ONE) TABLET ORAL TID PRN)
     Route: 048
     Dates: start: 20160518

REACTIONS (1)
  - Peripheral swelling [Unknown]

NARRATIVE: CASE EVENT DATE: 20160609
